FAERS Safety Report 14571195 (Version 2)
Quarter: 2018Q1

REPORT INFORMATION
  Report Type: Spontaneous
  Country: SI (occurrence: SI)
  Receive Date: 20180226
  Receipt Date: 20180302
  Transmission Date: 20180509
  Serious: Yes (Hospitalization, Other)
  Sender: FDA-Public Use
  Company Number: PHHY2018SI029383

PATIENT
  Sex: Male

DRUGS (2)
  1. TULIP (ATORVASTATIN CALCIUM) [Suspect]
     Active Substance: ATORVASTATIN CALCIUM
     Indication: PRODUCT USED FOR UNKNOWN INDICATION
     Dosage: 20 MG, UNK
     Route: 065
  2. METHYLPREDNISOLONE. [Concomitant]
     Active Substance: METHYLPREDNISOLONE
     Indication: PRODUCT USED FOR UNKNOWN INDICATION
     Dosage: 64 MG/DL, UNK
     Route: 048

REACTIONS (12)
  - Mental disorder [Unknown]
  - Abnormal dreams [Unknown]
  - Movement disorder [Unknown]
  - Speech disorder [Unknown]
  - Encephalitis [Recovered/Resolved]
  - Gait disturbance [Unknown]
  - Dysarthria [Unknown]
  - Muscle contractions involuntary [Unknown]
  - Nervousness [Unknown]
  - Tremor [Unknown]
  - Paresis [Unknown]
  - Fatigue [Unknown]
